FAERS Safety Report 9960573 (Version 1)
Quarter: 2014Q1

REPORT INFORMATION
  Report Type: Report from Study
  Country: US (occurrence: US)
  Receive Date: 20140305
  Receipt Date: 20140305
  Transmission Date: 20141002
  Serious: No
  Sender: FDA-Public Use
  Company Number: US-ABBVIE-13P-163-1108621-00

PATIENT
  Age: 54 Year
  Sex: Female

DRUGS (13)
  1. HUMIRA [Suspect]
     Indication: RHEUMATOID ARTHRITIS
     Dosage: ON FRIDAYS
     Dates: start: 20130201
  2. METHOTREXATE [Concomitant]
     Indication: RHEUMATOID ARTHRITIS
     Dosage: EVERY TUESDAY
  3. HYDROCODONE [Concomitant]
     Indication: PAIN
     Dosage: 10/500MG
  4. ALPRAZOLAM [Concomitant]
     Indication: ANXIETY
     Dosage: EVERY AM
  5. MECLIZINE [Concomitant]
     Indication: DIZZINESS
     Dosage: .5-1 TABLET AS NEEDED
  6. CLONAZEPAM [Concomitant]
     Indication: HEAD INJURY
     Dosage: AT SLEEP
  7. FOLIC ACID [Concomitant]
     Indication: PRODUCT USED FOR UNKNOWN INDICATION
     Dosage: 1MG DAILY
  8. SERTRALINE [Concomitant]
     Indication: HEAD INJURY
     Dosage: AT SLEEP
  9. METHYLPHENIDATE [Concomitant]
     Indication: HEAD INJURY
  10. METOPROLOL TARTRATE [Concomitant]
     Indication: HYPERTENSION
     Dosage: IN THE AM AND IN PM
  11. BLACK COHOSH EXTRACT [Concomitant]
     Indication: HOT FLUSH
  12. CITRACAL + D [Concomitant]
     Indication: RHEUMATOID ARTHRITIS
     Dosage: 2 TABLETS DAILY
  13. PREDNISONE [Concomitant]
     Indication: RHEUMATOID ARTHRITIS

REACTIONS (4)
  - Road traffic accident [Recovered/Resolved]
  - Contusion [Recovered/Resolved]
  - Post-traumatic neck syndrome [Recovered/Resolved]
  - Pain [Recovered/Resolved]
